FAERS Safety Report 10088124 (Version 1)
Quarter: 2014Q2

REPORT INFORMATION
  Report Type: Spontaneous
  Country: US (occurrence: US)
  Receive Date: 20140421
  Receipt Date: 20140421
  Transmission Date: 20141212
  Serious: No
  Sender: FDA-Public Use
  Company Number: US-009507513-1404USA007295

PATIENT
  Sex: 0

DRUGS (1)
  1. ZIOPTAN [Suspect]
     Indication: GLAUCOMA
     Dosage: 1 DROP  LEFT EYE ONCE DAILY
     Route: 031

REACTIONS (2)
  - Incorrect product storage [Unknown]
  - No adverse event [Unknown]
